FAERS Safety Report 20392624 (Version 6)
Quarter: 2022Q2

REPORT INFORMATION
  Report Type: Report from Study
  Country: FR (occurrence: FR)
  Receive Date: 20220128
  Receipt Date: 20220419
  Transmission Date: 20220721
  Serious: Yes (Life-Threatening, Hospitalization, Other)
  Sender: FDA-Public Use
  Company Number: FR-SERVIER-S22000799

PATIENT

DRUGS (6)
  1. PEGASPARGASE [Suspect]
     Active Substance: PEGASPARGASE
     Indication: Acute lymphocytic leukaemia
     Dosage: 887 IU, D12
     Route: 042
     Dates: start: 20220108, end: 20220108
  2. PREDNISONE [Suspect]
     Active Substance: PREDNISONE
     Indication: Acute lymphocytic leukaemia
     Dosage: 42 MG, D1-D7
     Route: 048
     Dates: start: 20211228, end: 20220103
  3. METHOTREXATE [Suspect]
     Active Substance: METHOTREXATE
     Indication: Acute lymphocytic leukaemia
     Dosage: 12 MG, D1, D9, D13, D18, D24)
     Route: 037
     Dates: start: 20211228, end: 20220120
  4. DEXAMETHASONE [Suspect]
     Active Substance: DEXAMETHASONE
     Indication: Acute lymphocytic leukaemia
     Dosage: 7.1 MG, D8-D28
     Route: 048
     Dates: start: 20220104
  5. VINCRISTINE [Suspect]
     Active Substance: VINCRISTINE
     Indication: Acute lymphocytic leukaemia
     Dosage: 1 MG, D8, D15, D22, D29
     Route: 042
     Dates: start: 20220104
  6. DAUNORUBICIN [Suspect]
     Active Substance: DAUNORUBICIN
     Indication: Acute lymphocytic leukaemia
     Dosage: 21.3 MG, D8, D15, D22, D29
     Route: 042
     Dates: start: 20220104

REACTIONS (7)
  - Status epilepticus [Recovering/Resolving]
  - Blood bilirubin increased [Recovering/Resolving]
  - Mucosal inflammation [Recovered/Resolved]
  - Right ventricular failure [Recovered/Resolved]
  - Ileus [Recovered/Resolved]
  - Hypoalbuminaemia [Recovered/Resolved]
  - Febrile bone marrow aplasia [Recovered/Resolved]

NARRATIVE: CASE EVENT DATE: 20220113
